FAERS Safety Report 19208910 (Version 3)
Quarter: 2021Q2

REPORT INFORMATION
  Report Type: Report from Study
  Country: CA (occurrence: CA)
  Receive Date: 20210504
  Receipt Date: 20210628
  Transmission Date: 20210717
  Serious: Yes (Other)
  Sender: FDA-Public Use
  Company Number: CA-IPSEN BIOPHARMACEUTICALS, INC.-2021-04513

PATIENT
  Age: 50 Year
  Sex: Female

DRUGS (13)
  1. CORTEF [Concomitant]
     Active Substance: HYDROCORTISONE
  2. MODERNA COVID?19 VACCINE [Suspect]
     Active Substance: CX-024414
     Indication: COVID-19 PROPHYLAXIS
     Dosage: DOSE NOT REPORTED
     Route: 065
     Dates: start: 20210421, end: 20210421
  3. OXAZEPAM. [Concomitant]
     Active Substance: OXAZEPAM
  4. SYNTHROID [Concomitant]
     Active Substance: LEVOTHYROXINE SODIUM
  5. TWYNSTA [Concomitant]
     Active Substance: AMLODIPINE BESYLATE\TELMISARTAN
  6. SOMATULINE AUTOGEL [Suspect]
     Active Substance: LANREOTIDE ACETATE
     Indication: ACROMEGALY
     Route: 058
     Dates: start: 20181019
  7. MODERNA COVID?19 VACCINE [Suspect]
     Active Substance: CX-024414
     Dosage: DOSE NOT REPORTED
     Route: 065
     Dates: start: 20210619, end: 20210619
  8. SOMATULINE AUTOGEL [Suspect]
     Active Substance: LANREOTIDE ACETATE
     Route: 058
     Dates: start: 20200927
  9. CORTEF [Concomitant]
     Active Substance: HYDROCORTISONE
  10. PANTOPRAZOLE [Concomitant]
     Active Substance: PANTOPRAZOLE
  11. DESMOPRESSIN [Concomitant]
     Active Substance: DESMOPRESSIN
  12. CYCLOBENZAPRINE. [Concomitant]
     Active Substance: CYCLOBENZAPRINE
  13. CORTEF [Concomitant]
     Active Substance: HYDROCORTISONE

REACTIONS (15)
  - Nasopharyngitis [Recovering/Resolving]
  - Disease progression [Unknown]
  - Fatigue [Recovered/Resolved]
  - Fatigue [Unknown]
  - Pyrexia [Recovered/Resolved]
  - Malaise [Unknown]
  - Discomfort [Recovered/Resolved]
  - Chills [Recovered/Resolved]
  - Fatigue [Recovered/Resolved]
  - Dysstasia [Unknown]
  - Drug ineffective [Unknown]
  - Discomfort [Unknown]
  - Injection site pain [Recovered/Resolved]
  - Hot flush [Recovered/Resolved]
  - Headache [Recovered/Resolved]

NARRATIVE: CASE EVENT DATE: 20210201
